FAERS Safety Report 13199635 (Version 3)
Quarter: 2017Q2

REPORT INFORMATION
  Report Type: Spontaneous
  Country: KR (occurrence: KR)
  Receive Date: 20170208
  Receipt Date: 20170601
  Transmission Date: 20170830
  Serious: Yes (Other)
  Sender: FDA-Public Use
  Company Number: KR-009507513-1702KOR002428

PATIENT
  Age: 46 Year
  Sex: Female
  Weight: 57.6 kg

DRUGS (60)
  1. ENDOXAN [Concomitant]
     Active Substance: CYCLOPHOSPHAMIDE
     Dosage: 805 MG, ONCE, CYCLE 3
     Route: 042
     Dates: start: 20161114, end: 20161114
  2. FLUOROURACIL. [Concomitant]
     Active Substance: FLUOROURACIL
     Dosage: STRENGTH: 1000/20 MG/ML; 800 MG, ONCE, CYCLE 8
     Route: 042
     Dates: start: 20161208, end: 20161208
  3. DEXAMETHASONE. [Concomitant]
     Active Substance: DEXAMETHASONE
     Dosage: 4 MG, BID
     Route: 048
     Dates: start: 20161227, end: 20161229
  4. PHARMORUBICIN [Concomitant]
     Active Substance: EPIRUBICIN
     Indication: CHEMOTHERAPY
     Dosage: STRENGTH: 10 MG/ML: 112.7 MG, ONCE, CYCLE 1
     Route: 042
     Dates: start: 20160929, end: 20160929
  5. PHARMORUBICIN [Concomitant]
     Active Substance: EPIRUBICIN
     Dosage: STRENGTH: 10 MG/ML: 112.7 MG, ONCE, CYCLE 2
     Route: 042
     Dates: start: 20161020, end: 20161020
  6. PHARMORUBICIN [Concomitant]
     Active Substance: EPIRUBICIN
     Dosage: STRENGTH: 10 MG/ML: 112.7 MG, ONCE, CYCLE 4
     Route: 042
     Dates: start: 20161205, end: 20161205
  7. FLUOROURACIL. [Concomitant]
     Active Substance: FLUOROURACIL
     Dosage: STRENGTH: 1000/20 MG/ML; 800 MG, ONCE, CYCLE 4
     Route: 042
     Dates: start: 20161023, end: 20161023
  8. FLUOROURACIL. [Concomitant]
     Active Substance: FLUOROURACIL
     Dosage: STRENGTH: 1000/20 MG/ML; 800 MG, ONCE, CYCLE 9
     Route: 042
     Dates: start: 20161226, end: 20161226
  9. ALOXI [Concomitant]
     Active Substance: PALONOSETRON HYDROCHLORIDE
     Indication: PROPHYLAXIS OF NAUSEA AND VOMITING
     Dosage: 0.25 MG, ONCE
     Route: 042
     Dates: start: 20160929, end: 20160929
  10. NASEA [Concomitant]
     Active Substance: RAMOSETRON HYDROCHLORIDE
     Dosage: 0.1 MG, ONCE
     Route: 048
     Dates: start: 20161209, end: 20161209
  11. ENTELON [Concomitant]
     Indication: PROPHYLAXIS
     Dosage: 150 MG, BID
     Route: 048
     Dates: start: 20160929, end: 20161003
  12. EMEND (FOSAPREPITANT DIMEGLUMINE) [Suspect]
     Active Substance: FOSAPREPITANT DIMEGLUMINE
     Indication: PROPHYLAXIS OF NAUSEA AND VOMITING
     Dosage: 150 MG, ONCE
     Route: 042
     Dates: start: 20160929, end: 20160929
  13. DEXAMETHASONE. [Concomitant]
     Active Substance: DEXAMETHASONE
     Indication: PROPHYLAXIS OF NAUSEA AND VOMITING
     Dosage: 6 MG, BID
     Route: 048
     Dates: start: 20160929, end: 20160929
  14. DEXAMETHASONE. [Concomitant]
     Active Substance: DEXAMETHASONE
     Dosage: 4 MG, BID
     Route: 048
     Dates: start: 20161115, end: 20161117
  15. DEXAMETHASONE. [Concomitant]
     Active Substance: DEXAMETHASONE
     Dosage: 6 MG, BID
     Route: 048
     Dates: start: 20161226, end: 20161226
  16. FLUOROURACIL. [Concomitant]
     Active Substance: FLUOROURACIL
     Dosage: STRENGTH: 1000/20 MG/ML; 800 MG, ONCE, CYCLE 2
     Route: 042
     Dates: start: 20161002, end: 20161002
  17. FLUOROURACIL. [Concomitant]
     Active Substance: FLUOROURACIL
     Dosage: STRENGTH: 1000/20 MG/ML; 800 MG, ONCE, CYCLE 6
     Route: 042
     Dates: start: 20161117, end: 20161117
  18. SANCUSO [Concomitant]
     Active Substance: GRANISETRON
     Indication: PROPHYLAXIS OF NAUSEA AND VOMITING
     Dosage: STRENGTH: 80.2X66.6 MM^2; 34.3 MG, ONCE
     Route: 062
     Dates: start: 20160928, end: 20160928
  19. SANCUSO [Concomitant]
     Active Substance: GRANISETRON
     Dosage: STRENGTH: 80.2X66.6 MM^2; 34.3 MG, ONCE
     Route: 062
     Dates: start: 20161204, end: 20161204
  20. NASEA [Concomitant]
     Active Substance: RAMOSETRON HYDROCHLORIDE
     Dosage: 0.1 MG, ONCE
     Route: 048
     Dates: start: 20161116, end: 20161118
  21. ENTELON [Concomitant]
     Dosage: 150 MG, BID
     Route: 048
     Dates: start: 20161205, end: 20161217
  22. ENDOXAN [Concomitant]
     Active Substance: CYCLOPHOSPHAMIDE
     Dosage: 805 MG, ONCE, CYCLE 5
     Route: 042
     Dates: start: 20161226, end: 20161226
  23. FLUOROURACIL. [Concomitant]
     Active Substance: FLUOROURACIL
     Dosage: STRENGTH: 1000/20 MG/ML; 800 MG, ONCE, CYCLE 3
     Route: 042
     Dates: start: 20161020, end: 20161020
  24. ALOXI [Concomitant]
     Active Substance: PALONOSETRON HYDROCHLORIDE
     Dosage: 0.25 MG, ONCE
     Route: 042
     Dates: start: 20161205, end: 20161205
  25. NASEA [Concomitant]
     Active Substance: RAMOSETRON HYDROCHLORIDE
     Dosage: 0.1 MG, ONCE
     Route: 048
     Dates: start: 20161230, end: 20161230
  26. ENTELON [Concomitant]
     Dosage: 150 MG, BID
     Route: 048
     Dates: start: 20161226, end: 20170107
  27. CARDIOXANE [Concomitant]
     Active Substance: DEXRAZOXANE HYDROCHLORIDE
     Indication: PROPHYLAXIS
     Dosage: 1 G, ONCE
     Route: 042
     Dates: start: 20160929, end: 20160929
  28. CARDIOXANE [Concomitant]
     Active Substance: DEXRAZOXANE HYDROCHLORIDE
     Dosage: 1 G, ONCE
     Route: 042
     Dates: start: 20161020, end: 20161020
  29. DEXAMETHASONE. [Concomitant]
     Active Substance: DEXAMETHASONE
     Dosage: 6 MG, BID
     Route: 048
     Dates: start: 20161114, end: 20161114
  30. NASEA [Concomitant]
     Active Substance: RAMOSETRON HYDROCHLORIDE
     Indication: PROPHYLAXIS OF NAUSEA AND VOMITING
     Dosage: 0.1 MG, ONCE
     Route: 048
     Dates: start: 20161003, end: 20161003
  31. EMEND (FOSAPREPITANT DIMEGLUMINE) [Suspect]
     Active Substance: FOSAPREPITANT DIMEGLUMINE
     Dosage: 150 MG, ONCE
     Route: 042
     Dates: start: 20161205, end: 20161205
  32. EMEND (FOSAPREPITANT DIMEGLUMINE) [Suspect]
     Active Substance: FOSAPREPITANT DIMEGLUMINE
     Dosage: 150 MG, ONCE
     Route: 042
     Dates: start: 20161226, end: 20161226
  33. DEXAMETHASONE. [Concomitant]
     Active Substance: DEXAMETHASONE
     Dosage: 6 MG, BID
     Route: 048
     Dates: start: 20161020, end: 20161020
  34. DEXAMETHASONE. [Concomitant]
     Active Substance: DEXAMETHASONE
     Dosage: 6 MG, BID
     Route: 048
     Dates: start: 20161205, end: 20161205
  35. ENDOXAN [Concomitant]
     Active Substance: CYCLOPHOSPHAMIDE
     Dosage: 805 MG, ONCE, CYCLE 4
     Route: 042
     Dates: start: 20161205, end: 20161205
  36. FLUOROURACIL. [Concomitant]
     Active Substance: FLUOROURACIL
     Dosage: STRENGTH: 1000/20 MG/ML; 800 MG, ONCE, CYCLE 5
     Route: 042
     Dates: start: 20161114, end: 20161114
  37. ALOXI [Concomitant]
     Active Substance: PALONOSETRON HYDROCHLORIDE
     Dosage: 0.25 MG, ONCE
     Route: 042
     Dates: start: 20161114, end: 20161114
  38. EMEND (FOSAPREPITANT DIMEGLUMINE) [Suspect]
     Active Substance: FOSAPREPITANT DIMEGLUMINE
     Dosage: 150 MG, ONCE
     Route: 042
     Dates: start: 20161114, end: 20161114
  39. DEXAMETHASONE. [Concomitant]
     Active Substance: DEXAMETHASONE
     Dosage: 4 MG, BID
     Route: 048
     Dates: start: 20161206, end: 20161208
  40. ENDOXAN [Concomitant]
     Active Substance: CYCLOPHOSPHAMIDE
     Indication: CHEMOTHERAPY
     Dosage: 805 MG, ONCE, CYCLE 1
     Route: 042
     Dates: start: 20160929, end: 20160929
  41. ENDOXAN [Concomitant]
     Active Substance: CYCLOPHOSPHAMIDE
     Dosage: 805 MG, ONCE, CYCLE 2
     Route: 042
     Dates: start: 20161020, end: 20161020
  42. PHARMORUBICIN [Concomitant]
     Active Substance: EPIRUBICIN
     Dosage: STRENGTH: 10 MG/ML: 112.7 MG, ONCE, CYCLE 3
     Route: 042
     Dates: start: 20161114, end: 20161114
  43. PHARMORUBICIN [Concomitant]
     Active Substance: EPIRUBICIN
     Dosage: STRENGTH: 10 MG/ML: 112.7 MG, ONCE, CYCLE 5
     Route: 042
     Dates: start: 20161226, end: 20161226
  44. SANCUSO [Concomitant]
     Active Substance: GRANISETRON
     Dosage: STRENGTH: 80.2X66.6 MM^2; 34.3 MG, ONCE
     Route: 062
     Dates: start: 20161019, end: 20161019
  45. SANCUSO [Concomitant]
     Active Substance: GRANISETRON
     Dosage: STRENGTH: 80.2X66.6 MM^2; 34.3 MG, ONCE
     Route: 062
     Dates: start: 20161109, end: 20161109
  46. ALOXI [Concomitant]
     Active Substance: PALONOSETRON HYDROCHLORIDE
     Dosage: 0.25 MG, ONCE
     Route: 042
     Dates: start: 20161226, end: 20161226
  47. NASEA [Concomitant]
     Active Substance: RAMOSETRON HYDROCHLORIDE
     Dosage: 0.1 MG, ONCE
     Route: 048
     Dates: start: 20161024, end: 20161024
  48. ENTELON [Concomitant]
     Dosage: 150 MG, BID
     Route: 048
     Dates: start: 20161020, end: 20161024
  49. ENTELON [Concomitant]
     Dosage: 150 MG, BID
     Route: 048
     Dates: start: 20161109, end: 20161118
  50. CARDIOXANE [Concomitant]
     Active Substance: DEXRAZOXANE HYDROCHLORIDE
     Dosage: 1 G, ONCE
     Route: 042
     Dates: start: 20161114, end: 20161114
  51. CARDIOXANE [Concomitant]
     Active Substance: DEXRAZOXANE HYDROCHLORIDE
     Dosage: 1 G, ONCE
     Route: 042
     Dates: start: 20161226, end: 20161226
  52. EMEND (FOSAPREPITANT DIMEGLUMINE) [Suspect]
     Active Substance: FOSAPREPITANT DIMEGLUMINE
     Dosage: 150 MG, ONCE
     Route: 042
     Dates: start: 20161020, end: 20161020
  53. DEXAMETHASONE. [Concomitant]
     Active Substance: DEXAMETHASONE
     Dosage: 4 MG, BID
     Route: 048
     Dates: start: 20160930, end: 20161002
  54. DEXAMETHASONE. [Concomitant]
     Active Substance: DEXAMETHASONE
     Dosage: 4 MG, BID
     Route: 048
     Dates: start: 20161021, end: 20161023
  55. FLUOROURACIL. [Concomitant]
     Active Substance: FLUOROURACIL
     Indication: CHEMOTHERAPY
     Dosage: STRENGTH: 1000/20 MG/ML; 800 MG, ONCE, CYCLE 1
     Route: 042
     Dates: start: 20160929, end: 20160929
  56. FLUOROURACIL. [Concomitant]
     Active Substance: FLUOROURACIL
     Dosage: STRENGTH: 1000/20 MG/ML; 800 MG, ONCE, CYCLE 7
     Route: 042
     Dates: start: 20161205, end: 20161205
  57. FLUOROURACIL. [Concomitant]
     Active Substance: FLUOROURACIL
     Dosage: STRENGTH: 1000/20 MG/ML; 800 MG, ONCE, CYCLE 10
     Route: 042
     Dates: start: 20161229, end: 20161229
  58. SANCUSO [Concomitant]
     Active Substance: GRANISETRON
     Dosage: STRENGTH: 80.2X66.6 MM^2; 34.3 MG, ONCE
     Route: 062
     Dates: start: 20161225, end: 20161225
  59. ALOXI [Concomitant]
     Active Substance: PALONOSETRON HYDROCHLORIDE
     Dosage: 0.25 MG, ONCE
     Route: 042
     Dates: start: 20161020, end: 20161020
  60. CARDIOXANE [Concomitant]
     Active Substance: DEXRAZOXANE HYDROCHLORIDE
     Dosage: 1 G, ONCE
     Route: 042
     Dates: start: 20161205, end: 20161205

REACTIONS (1)
  - Wound necrosis [Recovered/Resolved]

NARRATIVE: CASE EVENT DATE: 20161027
